FAERS Safety Report 5976510-2 (Version None)
Quarter: 2008Q4

REPORT INFORMATION
  Report Type: 
  Country: None (occurrence: None)
  Receive Date: 20081124
  Receipt Date: 20081111
  Transmission Date: 20090506
  Serious: Yes (Hospitalization)
  Sender: FDA-Public Use
  Company Number: AX222-08-0437

PATIENT
  Age: 63 Year
  Sex: Male

DRUGS (5)
  1. ABRAXANE [Suspect]
     Indication: HEAD AND NECK CANCER
     Dosage: 118 MG
     Route: 042
     Dates: start: 20061006, end: 20081013
  2. CISPLATIN [Suspect]
     Indication: HEAD AND NECK CANCER
     Dosage: 158 MG
     Route: 042
     Dates: start: 20081006, end: 20081006
  3. FLUOROURACIL [Suspect]
     Indication: HEAD AND NECK CANCER
     Dosage: 1580 MG
     Route: 042
     Dates: start: 20081007, end: 20081010
  4. ACETAMINOPHEN [Concomitant]
  5. MOUTHWASH [Concomitant]

REACTIONS (10)
  - BLOOD SODIUM DECREASED [None]
  - CATHETER RELATED COMPLICATION [None]
  - DIARRHOEA [None]
  - FEBRILE NEUTROPENIA [None]
  - HAEMOGLOBIN DECREASED [None]
  - HEART RATE INCREASED [None]
  - HYPOKALAEMIA [None]
  - THROMBOCYTOPENIA [None]
  - VENOUS THROMBOSIS LIMB [None]
  - WHITE BLOOD CELL COUNT DECREASED [None]
